FAERS Safety Report 14197077 (Version 15)
Quarter: 2019Q3

REPORT INFORMATION
  Report Type: Report from Study
  Country: US (occurrence: US)
  Receive Date: 20171116
  Receipt Date: 20190703
  Transmission Date: 20191004
  Serious: Yes (Hospitalization, Other)
  Sender: FDA-Public Use
  Company Number: US-ACTELION-A-US2016-133097

PATIENT
  Age: 75 Year
  Sex: Male
  Weight: 94.79 kg

DRUGS (8)
  1. ORENITRAM [Suspect]
     Active Substance: TREPROSTINIL
     Dosage: 12.5 MG, Q8HR
     Route: 065
  2. OPSUMIT [Suspect]
     Active Substance: MACITENTAN
     Indication: PULMONARY ARTERIAL HYPERTENSION
     Dosage: 10 MG, QD
     Route: 048
     Dates: start: 20151214
  3. ORENITRAM [Suspect]
     Active Substance: TREPROSTINIL
     Indication: PRODUCT USED FOR UNKNOWN INDICATION
     Dosage: UNK
     Route: 065
  4. ELIQUIS [Concomitant]
     Active Substance: APIXABAN
  5. ORENITRAM [Suspect]
     Active Substance: TREPROSTINIL
     Dosage: 14.5 MG, TID
     Route: 065
  6. ORENITRAM [Suspect]
     Active Substance: TREPROSTINIL
     Dosage: 14 MG, TID
     Route: 065
  7. REMODULIN [Concomitant]
     Active Substance: TREPROSTINIL
     Dosage: UNK
  8. OPSUMIT [Suspect]
     Active Substance: MACITENTAN
     Dosage: 10 MG, QD
     Route: 048

REACTIONS (24)
  - Abdominal pain [Unknown]
  - Cholecystectomy [Unknown]
  - Contusion [Unknown]
  - Diarrhoea [Not Recovered/Not Resolved]
  - Catheter site scab [Unknown]
  - Nausea [Unknown]
  - Headache [Not Recovered/Not Resolved]
  - Condition aggravated [Unknown]
  - Pulmonary arterial hypertension [Unknown]
  - Vomiting [Recovered/Resolved]
  - Visual impairment [Unknown]
  - Gastrointestinal surgery [Unknown]
  - Rhinitis [Not Recovered/Not Resolved]
  - Cholelithiasis [Unknown]
  - Pituitary tumour benign [Unknown]
  - Acute kidney injury [Recovered/Resolved]
  - Dyspnoea [Unknown]
  - Flushing [Unknown]
  - Bile duct stone [Recovered/Resolved]
  - Nasal congestion [Unknown]
  - Cholecystitis acute [Unknown]
  - Abdominal pain upper [Unknown]
  - Hepatic enzyme increased [Unknown]
  - Sinusitis [Unknown]

NARRATIVE: CASE EVENT DATE: 2016
